FAERS Safety Report 23994265 (Version 2)
Quarter: 2024Q3

REPORT INFORMATION
  Report Type: Report from Study
  Country: US (occurrence: US)
  Receive Date: 20240620
  Receipt Date: 20240704
  Transmission Date: 20241017
  Serious: Yes (Hospitalization)
  Sender: INSMED
  Company Number: US-INSMED, INC.-2023-03829-US

PATIENT
  Sex: Female

DRUGS (3)
  1. ARIKAYCE [Suspect]
     Active Substance: AMIKACIN
     Indication: Mycobacterial infection
     Dosage: 590 MILLIGRAM, QD
     Route: 055
     Dates: start: 20220715
  2. ARIKAYCE [Suspect]
     Active Substance: AMIKACIN
     Dosage: 590 MILLIGRAM, QD
     Route: 055
     Dates: start: 2023, end: 20240112
  3. ARIKAYCE [Suspect]
     Active Substance: AMIKACIN
     Dosage: 590 MILLIGRAM, QD
     Route: 055
     Dates: start: 2024

REACTIONS (8)
  - Hospitalisation [Unknown]
  - Condition aggravated [Unknown]
  - Adverse drug reaction [Unknown]
  - Illness [Unknown]
  - Inability to afford medication [Unknown]
  - Product dose omission issue [Unknown]
  - Therapy interrupted [Unknown]
  - Intentional dose omission [Unknown]

NARRATIVE: CASE EVENT DATE: 20230101
